FAERS Safety Report 5901320-1 (Version None)
Quarter: 2008Q3

REPORT INFORMATION
  Report Type: 
  Country: None (occurrence: None)
  Receive Date: 20080929
  Receipt Date: 20080916
  Transmission Date: 20090109
  Serious: Yes (Death)
  Sender: FDA-Public Use
  Company Number: US-BAYER-200833680NA

PATIENT
  Age: 62 Year
  Sex: Female

DRUGS (1)
  1. BETAPACE [Suspect]
     Indication: HEART RATE INCREASED
     Route: 048
     Dates: start: 20080703

REACTIONS (1)
  - DEPRESSED LEVEL OF CONSCIOUSNESS [None]
